FAERS Safety Report 5710261-4 (Version None)
Quarter: 2008Q2

REPORT INFORMATION
  Report Type: 
  Country: None (occurrence: None)
  Receive Date: 20080418
  Receipt Date: 20080416
  Transmission Date: 20081010
  Serious: Yes (Death)
  Sender: FDA-Public Use
  Company Number: CA-BOEHRINGER INGELHEIM GMBH, GERMANY-2008-DE-02280GD

PATIENT
  Sex: Male
  Weight: 7 kg

DRUGS (7)
  1. MORPHINE [Suspect]
     Indication: PAIN
     Dosage: 1.2 MG/KG
     Route: 042
  2. PARACETAMOL [Suspect]
     Indication: PAIN
  3. RANITIDINE [Concomitant]
     Indication: PROPHYLAXIS OF NAUSEA AND VOMITING
  4. ONDANSETRON [Concomitant]
     Indication: PROPHYLAXIS OF NAUSEA AND VOMITING
  5. DIMENHYDRINATE [Concomitant]
     Indication: PROPHYLAXIS OF NAUSEA AND VOMITING
  6. CLOBAZAM [Concomitant]
     Indication: PROPHYLAXIS OF NAUSEA AND VOMITING
  7. SIMETHICONE [Concomitant]
     Indication: PROPHYLAXIS OF NAUSEA AND VOMITING

REACTIONS (5)
  - ABDOMINAL DISCOMFORT [None]
  - DEATH [None]
  - IRRITABILITY [None]
  - NAUSEA [None]
  - VOMITING [None]
